FAERS Safety Report 12620714 (Version 1)
Quarter: 2016Q3

REPORT INFORMATION
  Report Type: Spontaneous
  Country: US (occurrence: US)
  Receive Date: 20160804
  Receipt Date: 20160804
  Transmission Date: 20161109
  Serious: Yes (Hospitalization, Other)
  Sender: FDA-Public Use
  Company Number: US-SUN PHARMACEUTICAL INDUSTRIES LTD-2016US-121353

PATIENT
  Age: 43 Year
  Sex: Female

DRUGS (1)
  1. ACETYLSALICYLIC ACID [Suspect]
     Active Substance: ASPIRIN
     Indication: PRODUCT USED FOR UNKNOWN INDICATION
     Dosage: SEVERAL HANDFULS FOR EACH OF THE 3 DAYS
     Route: 065

REACTIONS (6)
  - Toxicity to various agents [Recovered/Resolved]
  - Feeling abnormal [Recovered/Resolved]
  - Aggression [Recovered/Resolved]
  - Acidosis hyperchloraemic [Recovered/Resolved]
  - Confusional state [Recovered/Resolved]
  - Intentional self-injury [Unknown]
